FAERS Safety Report 9661062 (Version 2)
Quarter: 2013Q4

REPORT INFORMATION
  Report Type: Spontaneous
  Country: DE (occurrence: DE)
  Receive Date: 20131031
  Receipt Date: 20131120
  Transmission Date: 20140711
  Serious: Yes (Death, Hospitalization)
  Sender: FDA-Public Use
  Company Number: DE-GLAXOSMITHKLINE-D0081581A

PATIENT
  Sex: Female
  Weight: 81 kg

DRUGS (3)
  1. ARIXTRA [Suspect]
     Indication: ATRIAL FIBRILLATION
     Dosage: 7.5MG PER DAY
     Route: 065
     Dates: start: 20130527, end: 20130625
  2. PRADAXA [Concomitant]
     Indication: ATRIAL FIBRILLATION
     Route: 065
  3. ERYTHROCYTE CONCENTRATE [Concomitant]
     Route: 042

REACTIONS (5)
  - Pulmonary embolism [Fatal]
  - Renal impairment [Not Recovered/Not Resolved]
  - Renal failure [Not Recovered/Not Resolved]
  - Heparin-induced thrombocytopenia [Unknown]
  - Haematoma [Unknown]
